FAERS Safety Report 4951417-8 (Version None)
Quarter: 2006Q1

REPORT INFORMATION
  Report Type: 
  Country: None (occurrence: None)
  Receive Date: 20060323
  Receipt Date: 20051114
  Transmission Date: 20060701
  Serious: Yes (Hospitalization)
  Sender: FDA-Public Use
  Company Number: FI-JNJFOC-20060304423

PATIENT
  Sex: Female

DRUGS (10)
  1. DAKTARIN [Suspect]
     Indication: ORAL CANDIDIASIS
     Route: 048
     Dates: start: 20051010, end: 20051024
  2. MAREVAN [Interacting]
     Route: 048
  3. MAREVAN [Interacting]
     Indication: ATRIAL FIBRILLATION
     Route: 048
  4. OMEPRAZOLE [Suspect]
     Route: 048
     Dates: start: 20050919, end: 20051022
  5. DIUREX [Concomitant]
     Route: 048
  6. DIUREX [Concomitant]
     Indication: HYPERTENSION
     Route: 048
  7. BISOPROLOL [Concomitant]
     Indication: HYPERTENSION
     Route: 048
  8. ARTHRYL [Concomitant]
     Route: 048
  9. ARTHRYL [Concomitant]
     Route: 048
  10. ARTHRYL [Concomitant]
     Indication: OSTEOARTHRITIS
     Route: 048

REACTIONS (3)
  - DRUG INTERACTION [None]
  - INTERNATIONAL NORMALISED RATIO INCREASED [None]
  - OEDEMA PERIPHERAL [None]
